FAERS Safety Report 9057632 (Version 1)
Quarter: 2013Q1

REPORT INFORMATION
  Report Type: Spontaneous
  Country: US (occurrence: None)
  Receive Date: 20130204
  Receipt Date: 20130204
  Transmission Date: 20140127
  Serious: Yes (Hospitalization)
  Sender: FDA-Public Use
  Company Number: None

PATIENT
  Age: 87 Year
  Sex: Female
  Weight: 85 kg

DRUGS (5)
  1. LANTUS [Suspect]
     Indication: DIABETES MELLITUS
     Dosage: ? UNITS  ONCE SQ  CHRONIC WITH RECENT INCREASE
  2. HUMALOG [Suspect]
     Indication: DIABETES MELLITUS
     Dosage: ? TID WM SQ  CHRONIC WITH RECENT INCREASE
  3. LANTUS [Concomitant]
  4. HUMALOG [Concomitant]
  5. NOVOLOG SS [Concomitant]

REACTIONS (3)
  - Unresponsive to stimuli [None]
  - Hypoglycaemia [None]
  - Accidental overdose [None]
